FAERS Safety Report 20373026 (Version 1)
Quarter: 2022Q1

REPORT INFORMATION
  Report Type: Spontaneous
  Country: DE (occurrence: DE)
  Receive Date: 20220125
  Receipt Date: 20220125
  Transmission Date: 20220423
  Serious: Yes (Other)
  Sender: FDA-Public Use
  Company Number: DE-AMGEN-DEUNI2019077675

PATIENT
  Age: 70 Year
  Sex: Male
  Weight: 92 kg

DRUGS (30)
  1. LEUCOVORIN [Suspect]
     Active Substance: LEUCOVORIN
     Indication: Colorectal cancer metastatic
     Dosage: 830 MILLIGRAM
     Route: 065
     Dates: start: 20190306
  2. LEUCOVORIN [Suspect]
     Active Substance: LEUCOVORIN
     Dosage: 840 MILLIGRAM
     Route: 065
     Dates: start: 20190513
  3. LEUCOVORIN [Suspect]
     Active Substance: LEUCOVORIN
     Dosage: 830 MILLIGRAM
     Route: 065
     Dates: start: 20190619
  4. LEUCOVORIN [Suspect]
     Active Substance: LEUCOVORIN
     Dosage: 820 MILLIGRAM
     Route: 065
     Dates: start: 20190814
  5. LEUCOVORIN [Suspect]
     Active Substance: LEUCOVORIN
     Dosage: 830 MILLIGRAM
     Route: 065
     Dates: start: 20190925
  6. IRINOTECAN [Suspect]
     Active Substance: IRINOTECAN
     Indication: Colorectal cancer metastatic
     Dosage: 374 MILLIGRAM
     Route: 065
     Dates: start: 20190306
  7. IRINOTECAN [Suspect]
     Active Substance: IRINOTECAN
     Dosage: 380 MILLIGRAM
     Route: 065
     Dates: start: 20190513
  8. IRINOTECAN [Suspect]
     Active Substance: IRINOTECAN
     Dosage: 376 MILLIGRAM
     Route: 042
     Dates: start: 20190527
  9. IRINOTECAN [Suspect]
     Active Substance: IRINOTECAN
     Dosage: 374 MILLIGRAM
     Route: 065
     Dates: start: 20190619
  10. IRINOTECAN [Suspect]
     Active Substance: IRINOTECAN
     Dosage: 371 MILLIGRAM
     Route: 065
     Dates: start: 20190814
  11. IRINOTECAN [Suspect]
     Active Substance: IRINOTECAN
     Dosage: 373 MILLIGRAM
     Route: 065
     Dates: start: 20190925
  12. FLUOROURACIL [Suspect]
     Active Substance: FLUOROURACIL
     Indication: Colorectal cancer metastatic
     Dosage: 4990 MILLIGRAM
     Route: 042
     Dates: start: 20190306
  13. FLUOROURACIL [Suspect]
     Active Substance: FLUOROURACIL
     Dosage: 830 MILLIGRAM
     Route: 040
     Dates: start: 20190306
  14. FLUOROURACIL [Suspect]
     Active Substance: FLUOROURACIL
     Dosage: 5060 MILLIGRAM
     Route: 042
     Dates: start: 20190513
  15. FLUOROURACIL [Suspect]
     Active Substance: FLUOROURACIL
     Dosage: 5020 MILLIGRAM
     Route: 042
     Dates: start: 20190527
  16. FLUOROURACIL [Suspect]
     Active Substance: FLUOROURACIL
     Dosage: 4990 MILLIGRAM
     Route: 042
     Dates: start: 20190619
  17. FLUOROURACIL [Suspect]
     Active Substance: FLUOROURACIL
     Dosage: 4940 MILLIGRAM
     Route: 042
     Dates: start: 20190814
  18. FLUOROURACIL [Suspect]
     Active Substance: FLUOROURACIL
     Dosage: 4970 MILLIGRAM
     Route: 042
     Dates: start: 20190925
  19. VECTIBIX [Suspect]
     Active Substance: PANITUMUMAB
     Indication: Colorectal cancer metastatic
     Dosage: 552 MILLIGRAM
     Route: 042
     Dates: start: 20190306
  20. APREPITANT [Concomitant]
     Active Substance: APREPITANT
     Indication: Prophylaxis
     Dosage: 150 MILLIGRAM, CYCLICAL
     Route: 042
     Dates: start: 20190306
  21. ATROPINE [Concomitant]
     Active Substance: ATROPINE
     Indication: Prophylaxis
     Dosage: 0.25 MILLIGRAM, CYCLICAL
     Route: 058
     Dates: start: 20190306
  22. ESIDRIX [Concomitant]
     Active Substance: HYDROCHLOROTHIAZIDE
     Indication: Oedema
     Dosage: 25 MILLIGRAM, ONCE A DAY
     Route: 048
     Dates: start: 20190402
  23. DEXAMETHASONE [Concomitant]
     Active Substance: DEXAMETHASONE
     Indication: Prophylaxis
     Dosage: 8 MILLIGRAM, CYCLICAL
     Route: 042
     Dates: start: 20190306
  24. DOXYCYCLINE [Concomitant]
     Active Substance: DOXYCYCLINE
     Indication: Product used for unknown indication
     Dosage: 50 MILLIGRAM, ONCE A DAY
     Route: 048
     Dates: start: 201904
  25. GRANISETRON [Concomitant]
     Active Substance: GRANISETRON
     Indication: Prophylaxis
     Dosage: 1-4 MILLIGRAM, PER CYCLE
     Route: 065
     Dates: start: 20190306
  26. IODINE [Concomitant]
     Active Substance: IODINE
     Indication: Hypothyroidism
     Dosage: 200 MICROGRAM, ONCE A DAY
     Route: 048
     Dates: start: 1989
  27. METAMIZOLE [Concomitant]
     Active Substance: METAMIZOLE
     Indication: Pain
     Dosage: 500 MILLIGRAM, AS NECESSARY
     Route: 048
     Dates: start: 201902
  28. PANTOZOL [Concomitant]
     Active Substance: PANTOPRAZOLE SODIUM
     Indication: Prophylaxis
     Dosage: 40 MILLIGRAM, ONCE A DAY
     Route: 048
     Dates: start: 201601
  29. ACETAMINOPHEN [Concomitant]
     Active Substance: ACETAMINOPHEN
     Indication: Pain
     Dosage: 500 MILLIGRAM, AS NECESSARY
     Route: 048
     Dates: start: 201902
  30. LITHIUM [Concomitant]
     Active Substance: LITHIUM
     Indication: Bipolar disorder
     Dosage: 850 MILLIGRAM
     Route: 048
     Dates: start: 1989

REACTIONS (1)
  - Subcutaneous abscess [Recovered/Resolved]

NARRATIVE: CASE EVENT DATE: 20190407
